FAERS Safety Report 19086719 (Version 1)
Quarter: 2021Q2

REPORT INFORMATION
  Report Type: Spontaneous
  Country: US (occurrence: US)
  Receive Date: 20210402
  Receipt Date: 20210402
  Transmission Date: 20210717
  Serious: Yes (Life-Threatening, Other)
  Sender: FDA-Public Use
  Company Number: None

PATIENT
  Age: 59 Year
  Sex: Female

DRUGS (1)
  1. SODIUM IODIDE I 123 [Suspect]
     Active Substance: SODIUM IODIDE I-123
     Indication: THYROID FUNCTION TEST
     Dosage: ?          QUANTITY:1 CAPSULE(S);OTHER FREQUENCY:FOR TEST;?
     Route: 048
     Dates: start: 20210331, end: 20210401

REACTIONS (9)
  - Dysphagia [None]
  - Pruritus [None]
  - Lip swelling [None]
  - Swollen tongue [None]
  - Urticaria [None]
  - Mouth swelling [None]
  - Headache [None]
  - Flushing [None]
  - Throat irritation [None]

NARRATIVE: CASE EVENT DATE: 20210331
